FAERS Safety Report 25133125 (Version 1)
Quarter: 2025Q1

REPORT INFORMATION
  Report Type: Report from Study
  Country: CA (occurrence: CA)
  Receive Date: 20250328
  Receipt Date: 20250328
  Transmission Date: 20250408
  Serious: Yes (Other)
  Sender: ABBVIE
  Company Number: CA-ABBVIE-6190788

PATIENT
  Sex: Male

DRUGS (2)
  1. VENCLEXTA [Suspect]
     Active Substance: VENETOCLAX
     Indication: Acute myeloid leukaemia
     Dosage: 100 MG, FREQUENCY: DAILY FOR 28 DAYS
     Route: 048
     Dates: start: 20240430, end: 202503
  2. AZACITIDINE [Concomitant]
     Active Substance: AZACITIDINE
     Indication: Product used for unknown indication

REACTIONS (4)
  - Blood disorder [Unknown]
  - Asthenia [Unknown]
  - Asthenia [Unknown]
  - Localised infection [Recovered/Resolved with Sequelae]
